FAERS Safety Report 4311317-3 (Version None)
Quarter: 2004Q1

REPORT INFORMATION
  Report Type: 
  Country: None (occurrence: None)
  Receive Date: 20040302
  Receipt Date: 20040302
  Transmission Date: 20041129
  Serious: Yes (Other)
  Sender: FDA-Public Use
  Company Number: None

PATIENT

DRUGS (2)
  1. FLUPHENAZINE DECANOATE [Suspect]
     Indication: SCHIZOAFFECTIVE DISORDER
     Dosage: 1ML IM Q 2 WKS
     Route: 030
     Dates: start: 20040211
  2. FLUPHENAZINE DECANOATE [Suspect]
     Indication: SCHIZOAFFECTIVE DISORDER
     Dosage: 1ML IM Q 2 WKS
     Route: 030
     Dates: start: 20040225

REACTIONS (3)
  - PHARMACEUTICAL PRODUCT COMPLAINT [None]
  - PRURITUS [None]
  - URTICARIA [None]
